FAERS Safety Report 17135375 (Version 3)
Quarter: 2019Q4

REPORT INFORMATION
  Report Type: Spontaneous
  Country: US (occurrence: US)
  Receive Date: 20191210
  Receipt Date: 20191226
  Transmission Date: 20200122
  Serious: No
  Sender: FDA-Public Use
  Company Number: US-PFIZER INC-2019532712

PATIENT
  Age: 65 Year

DRUGS (1)
  1. DILANTIN [Suspect]
     Active Substance: PHENYTOIN
     Indication: SEIZURE
     Dosage: 500 MG, DAILY (3 CAPSULES AT 9 AM, 2 CAPSULES AT 5 PM)
     Route: 048

REACTIONS (1)
  - Feeling abnormal [Unknown]
